FAERS Safety Report 14620071 (Version 2)
Quarter: 2018Q1

REPORT INFORMATION
  Report Type: Spontaneous
  Country: CA (occurrence: CA)
  Receive Date: 20180309
  Receipt Date: 20180319
  Transmission Date: 20180509
  Serious: Yes (Hospitalization, Other)
  Sender: FDA-Public Use
  Company Number: CA-CELLTRION INC.-2017CA011383

PATIENT

DRUGS (28)
  1. APO-ACETAMINOPHEN [Concomitant]
     Active Substance: ACETAMINOPHEN
  2. ACETAMINOPHEN AND CODEINE [Concomitant]
     Active Substance: ACETAMINOPHEN\CODEINE PHOSPHATE
  3. APO-PANTOPRAZOLE [Concomitant]
     Active Substance: PANTOPRAZOLE SODIUM
  4. PMS-ASA [Concomitant]
  5. APO-ATORVASTATIN [Concomitant]
     Active Substance: ATORVASTATIN
  6. BOOST [Concomitant]
     Active Substance: DIETARY SUPPLEMENT
  7. PMS-CIPROFLOXACIN [Concomitant]
  8. EURO-K20 [Concomitant]
  9. CHAMPIX [Concomitant]
     Active Substance: VARENICLINE TARTRATE
  10. SUMATRIPTAN. [Concomitant]
     Active Substance: SUMATRIPTAN
  11. APO-LORAZEPAM [Concomitant]
     Active Substance: LORAZEPAM
  12. INFLECTRA [Suspect]
     Active Substance: INFLIXIMAB-DYYB
     Indication: CROHN^S DISEASE
     Dosage: 300 MG, CYCLIC (EVERY 0, 2,6 WEEKS, THEN EVERY 8WEEKS)
     Route: 042
     Dates: start: 20170814, end: 20170929
  13. VITAMIN B12 [Concomitant]
     Active Substance: CYANOCOBALAMIN
  14. JAMP VITAMIN B12 [Concomitant]
  15. CALCIUM CARBONATE. [Concomitant]
     Active Substance: CALCIUM CARBONATE
  16. BISACODYL. [Concomitant]
     Active Substance: BISACODYL
  17. HYDROMORPH CONTIN [Concomitant]
     Active Substance: HYDROMORPHONE
  18. APO-PREDNISONE [Concomitant]
     Active Substance: PREDNISONE
  19. STATEX                             /00036302/ [Concomitant]
     Active Substance: MORPHINE SULFATE
  20. APO HYDROMORPHONE [Concomitant]
     Active Substance: HYDROMORPHONE HYDROCHLORIDE
  21. VITAMIN D3 [Concomitant]
     Active Substance: CHOLECALCIFEROL
  22. JAMP K8 [Concomitant]
  23. METRONIDAZOLE. [Concomitant]
     Active Substance: METRONIDAZOLE
  24. INFLECTRA [Suspect]
     Active Substance: INFLIXIMAB-DYYB
     Dosage: 300 MG, CYCLIC (EVERY 0, 2,6 WEEKS, THEN EVERY 8WEEKS)
     Route: 042
     Dates: start: 20170901, end: 20170901
  25. FLEET ENEMA MINERAL OIL [Concomitant]
  26. LOVENOX [Concomitant]
     Active Substance: ENOXAPARIN SODIUM
     Dosage: UNK
     Dates: start: 20171001, end: 20171009
  27. RATIO-LENOLTEC NO 3 [Concomitant]
     Active Substance: ACETAMINOPHEN\CAFFEINE\CODEINE PHOSPHATE
     Dosage: UNK
  28. PENTASA [Concomitant]
     Active Substance: MESALAMINE

REACTIONS (5)
  - Neuroendocrine tumour [Unknown]
  - Nausea [Recovering/Resolving]
  - Malaise [Unknown]
  - Vomiting [Not Recovered/Not Resolved]
  - Gastrointestinal carcinoma [Unknown]

NARRATIVE: CASE EVENT DATE: 201708
